FAERS Safety Report 6413213-4 (Version None)
Quarter: 2009Q4

REPORT INFORMATION
  Report Type: 
  Country: None (occurrence: None)
  Receive Date: 20091026
  Receipt Date: 20091016
  Transmission Date: 20100525
  Serious: Yes (Death)
  Sender: FDA-Public Use
  Company Number: PHHY2009DE45619

PATIENT
  Sex: Male
  Weight: 74 kg

DRUGS (9)
  1. ALISKIREN ALI+ [Suspect]
     Indication: HYPERTENSION
     Dosage: UNK
     Dates: start: 20081015
  2. BETA BLOCKING AGENTS [Concomitant]
  3. DIURETICS [Concomitant]
  4. ALPHA-ADRENOCEPTOR BLOCKING AGENTS [Concomitant]
  5. ANTIHYPERTENSIVES [Concomitant]
  6. NITRATES [Concomitant]
  7. ACETYLSALICYLIC ACID [Concomitant]
  8. STATIN [Concomitant]
  9. CALCIUM ANTAGONIST [Concomitant]

REACTIONS (1)
  - CARDIOVASCULAR DISORDER [None]
